FAERS Safety Report 19173408 (Version 1)
Quarter: 2021Q2

REPORT INFORMATION
  Report Type: Spontaneous
  Country: CA (occurrence: CA)
  Receive Date: 20210423
  Receipt Date: 20210423
  Transmission Date: 20210717
  Serious: Yes (Death, Hospitalization, Other)
  Sender: FDA-Public Use
  Company Number: CA-JNJFOC-20210426207

PATIENT
  Age: 77 Year
  Sex: Male

DRUGS (1)
  1. UPTRAVI [Suspect]
     Active Substance: SELEXIPAG
     Indication: PULMONARY ARTERIAL HYPERTENSION
     Route: 048

REACTIONS (11)
  - Bedridden [Unknown]
  - Myalgia [Recovering/Resolving]
  - Pain in extremity [Unknown]
  - Pain [Unknown]
  - Death [Fatal]
  - Inappropriate schedule of product administration [Unknown]
  - Hospitalisation [Unknown]
  - Chills [Recovered/Resolved]
  - Product use issue [Unknown]
  - Fatigue [Recovered/Resolved]
  - Drug ineffective [Unknown]
